FAERS Safety Report 9233295 (Version 1)
Quarter: 2013Q2

REPORT INFORMATION
  Report Type: Spontaneous
  Country: US (occurrence: US)
  Receive Date: 20130416
  Receipt Date: 20130416
  Transmission Date: 20140414
  Serious: No
  Sender: FDA-Public Use
  Company Number: US-BANPHARM-20130906

PATIENT
  Sex: Female

DRUGS (1)
  1. ALEVE LIQUID GELS 220MG [Suspect]
     Indication: ACCIDENTAL EXPOSURE TO PRODUCT BY CHILD
     Dosage: 1 DF,
     Route: 048
     Dates: start: 20120411, end: 20120411

REACTIONS (2)
  - Vomiting [Unknown]
  - Accidental exposure to product by child [Unknown]
